FAERS Safety Report 9675095 (Version 1)
Quarter: 2013Q4

REPORT INFORMATION
  Report Type: Spontaneous
  Country: US (occurrence: None)
  Receive Date: 20131105
  Receipt Date: 20131105
  Transmission Date: 20140711
  Serious: Yes (Death)
  Sender: FDA-Public Use
  Company Number: 2013-US-002567

PATIENT
  Age: 80 Year
  Sex: Female

DRUGS (4)
  1. PRIALT [Suspect]
     Indication: PAIN
     Dosage: UG/HR
     Route: 037
  2. PRIALT [Suspect]
     Indication: POST LAMINECTOMY SYNDROME
     Dosage: UG/HR
     Route: 037
  3. MORPHINE SULFATE (MORPHINE SULFATE) INJECTION [Suspect]
     Dosage: MG/HR
     Route: 037
  4. CLONIDINE [Suspect]
     Dosage: UG/HR
     Route: 037

REACTIONS (1)
  - Cardiac failure congestive [None]
